FAERS Safety Report 7532309-7 (Version None)
Quarter: 2011Q2

REPORT INFORMATION
  Report Type: 
  Country: None (occurrence: None)
  Receive Date: 20110608
  Receipt Date: 20110602
  Transmission Date: 20111010
  Serious: Yes (Other)
  Sender: FDA-Public Use
  Company Number: JP-MERCK-1106USA00061

PATIENT
  Age: 84 Year
  Sex: Male

DRUGS (2)
  1. PEPCID [Suspect]
     Route: 042
     Dates: start: 20110527
  2. LANSOPRAZOLE [Concomitant]
     Route: 042

REACTIONS (1)
  - ALTERED STATE OF CONSCIOUSNESS [None]
